FAERS Safety Report 24255817 (Version 1)
Quarter: 2024Q3

REPORT INFORMATION
  Report Type: Spontaneous
  Country: US (occurrence: US)
  Receive Date: 20240827
  Receipt Date: 20240827
  Transmission Date: 20241017
  Serious: No
  Sender: MYLAN
  Company Number: US-MYLANLABS-2024M1077659

PATIENT
  Sex: Female
  Weight: 74.84 kg

DRUGS (1)
  1. ESTRADIOL TRANSDERMAL SYSTEM [Suspect]
     Active Substance: ESTRADIOL
     Indication: Oestrogen replacement therapy
     Dosage: 0.05 MILLIGRAM, QD (TWICE WEEKLY)
     Route: 062

REACTIONS (5)
  - Drug hypersensitivity [Unknown]
  - Application site erythema [Unknown]
  - Application site irritation [Unknown]
  - Application site burn [Unknown]
  - Product adhesion issue [Unknown]
